FAERS Safety Report 20786094 (Version 1)
Quarter: 2022Q2

REPORT INFORMATION
  Report Type: Other
  Country: US (occurrence: None)
  Receive Date: 20220504
  Receipt Date: 20220504
  Transmission Date: 20220721
  Serious: No
  Sender: FDA-Public Use
  Company Number: US-ROCHE-2934874

PATIENT
  Age: 37 Year
  Sex: Male

DRUGS (2)
  1. OCRELIZUMAB [Suspect]
     Active Substance: OCRELIZUMAB
     Indication: Multiple sclerosis
     Route: 065
  2. IVERMECTIN [Concomitant]
     Active Substance: IVERMECTIN

REACTIONS (1)
  - Parasitic pneumonia [Unknown]
